FAERS Safety Report 7034594-7 (Version None)
Quarter: 2010Q4

REPORT INFORMATION
  Report Type: 
  Country: None (occurrence: None)
  Receive Date: 20101008
  Receipt Date: 20100927
  Transmission Date: 20110411
  Serious: Yes (Hospitalization, Disabling, Other)
  Sender: FDA-Public Use
  Company Number: US-JNJFOC-20101002009

PATIENT
  Sex: Female

DRUGS (1)
  1. TRAMADOL HYDROCHLORIDE [Suspect]
     Indication: SURGERY
     Route: 065

REACTIONS (6)
  - CHEST PAIN [None]
  - CONVULSION [None]
  - IMPAIRED WORK ABILITY [None]
  - LIVER INJURY [None]
  - RENAL INJURY [None]
  - SHOCK [None]
